FAERS Safety Report 25937950 (Version 1)
Quarter: 2025Q4

REPORT INFORMATION
  Report Type: Spontaneous
  Country: CN (occurrence: CN)
  Receive Date: 20251018
  Receipt Date: 20251018
  Transmission Date: 20260118
  Serious: Yes (Hospitalization, Other)
  Sender: ABBVIE
  Company Number: CN-ABBVIE-6503948

PATIENT
  Age: 63 Year
  Sex: Male
  Weight: 65 kg

DRUGS (2)
  1. VENETOCLAX [Suspect]
     Active Substance: VENETOCLAX
     Indication: Chemotherapy
     Route: 048
     Dates: start: 20250827, end: 20250902
  2. CYTARABINE [Suspect]
     Active Substance: CYTARABINE
     Indication: Chemotherapy
     Dosage: INTRAVENOUS DRIP
     Dates: start: 20250827, end: 20250830

REACTIONS (2)
  - Myelosuppression [Recovering/Resolving]
  - Granulocytopenia [Recovering/Resolving]

NARRATIVE: CASE EVENT DATE: 20250903
